FAERS Safety Report 18147588 (Version 3)
Quarter: 2020Q4

REPORT INFORMATION
  Report Type: Spontaneous
  Country: CN (occurrence: CN)
  Receive Date: 20200814
  Receipt Date: 20201021
  Transmission Date: 20210113
  Serious: Yes (Hospitalization, Disabling, Congenital Anomaly)
  Sender: FDA-Public Use
  Company Number: CN-JNJFOC-20200807982

PATIENT

DRUGS (1)
  1. CHILDRENS MOTRIN [Suspect]
     Active Substance: IBUPROFEN
     Indication: PATENT DUCTUS ARTERIOSUS
     Dosage: 10 MG/KG QD FOR 3 DAYS
     Route: 048

REACTIONS (8)
  - Product use in unapproved indication [Unknown]
  - Inadequate diet [Unknown]
  - Necrotising colitis [Unknown]
  - Gastrointestinal haemorrhage [Unknown]
  - Cholestasis [Recovered/Resolved]
  - Duodenogastric reflux [Unknown]
  - Parenteral nutrition [Unknown]
  - Off label use [Unknown]
